FAERS Safety Report 19230373 (Version 1)
Quarter: 2021Q2

REPORT INFORMATION
  Report Type: Spontaneous
  Country: US (occurrence: US)
  Receive Date: 20210507
  Receipt Date: 20210507
  Transmission Date: 20210717
  Serious: Yes (Other)
  Sender: FDA-Public Use
  Company Number: US-STRIDES ARCOLAB LIMITED-2021SP005207

PATIENT
  Age: 70 Year
  Sex: Male

DRUGS (4)
  1. PREDNISOLONE. [Suspect]
     Active Substance: PREDNISOLONE
     Indication: DEAFNESS NEUROSENSORY
     Dosage: UNK, HIGH DOSE
     Route: 048
  2. DEXAMETHASONE. [Suspect]
     Active Substance: DEXAMETHASONE
     Dosage: 0.5 MILLLILITER OF 10 MILLIGRAM PER MILLILITRE (SECOND IT INJECTION)
  3. DEXAMETHASONE. [Suspect]
     Active Substance: DEXAMETHASONE
     Indication: DEAFNESS NEUROSENSORY
     Dosage: 0.5 MILLLILITER OF 10 MILLIGRAM PER MILLILITRE (FIRST IT INJECTION)
  4. PHENOL. [Concomitant]
     Active Substance: PHENOL
     Indication: DEAFNESS NEUROSENSORY
     Dosage: UNK
     Route: 061

REACTIONS (3)
  - Osteonecrosis [Recovered/Resolved]
  - Off label use [Unknown]
  - Drug ineffective [Unknown]
